FAERS Safety Report 8836204 (Version 1)
Quarter: 2012Q4

REPORT INFORMATION
  Report Type: 
  Country: US (occurrence: US)
  Receive Date: 20121011
  Receipt Date: 20121011
  Transmission Date: 20130627
  Serious: Yes (Other)
  Sender: FDA-Public Use
  Company Number: US-GLAXOSMITHKLINE-A0996878A

PATIENT
  Sex: Female

DRUGS (1)
  1. BENLYSTA [Suspect]
     Indication: SYSTEMIC LUPUS ERYTHEMATOSUS
     Route: 042
     Dates: start: 20120612

REACTIONS (8)
  - Systemic lupus erythematosus [Recovered/Resolved]
  - Arthralgia [Recovered/Resolved]
  - Myalgia [Recovered/Resolved]
  - Ill-defined disorder [Recovered/Resolved]
  - Pain in extremity [Recovered/Resolved]
  - Fluid retention [Recovered/Resolved]
  - Oedema peripheral [Recovered/Resolved]
  - Bedridden [Recovered/Resolved]
